FAERS Safety Report 12782243 (Version 1)
Quarter: 2016Q3

REPORT INFORMATION
  Report Type: Spontaneous
  Country: US (occurrence: US)
  Receive Date: 20160927
  Receipt Date: 20160927
  Transmission Date: 20161109
  Serious: Yes (Hospitalization, Other)
  Sender: FDA-Public Use
  Company Number: US-BEH-200814003

PATIENT
  Age: 46 Year
  Sex: Female
  Weight: 69.4 kg

DRUGS (14)
  1. VIVAGLOBIN [Suspect]
     Active Substance: HUMAN IMMUNOGLOBULIN G
     Route: 058
  2. VIVAGLOBIN [Suspect]
     Active Substance: HUMAN IMMUNOGLOBULIN G
     Indication: IMMUNODEFICIENCY
     Route: 058
     Dates: start: 200808, end: 200808
  3. IBUPROPHEN [Concomitant]
     Active Substance: IBUPROFEN
  4. VIVAGLOBIN [Suspect]
     Active Substance: HUMAN IMMUNOGLOBULIN G
     Route: 058
  5. VIVAGLOBIN [Suspect]
     Active Substance: HUMAN IMMUNOGLOBULIN G
     Route: 058
  6. ADVAIR HFA [Concomitant]
     Active Substance: FLUTICASONE PROPIONATE\SALMETEROL XINAFOATE
  7. FOSAMAX [Concomitant]
     Active Substance: ALENDRONATE SODIUM
  8. TRAMIDOL [Concomitant]
  9. NAPROXEN. [Concomitant]
     Active Substance: NAPROXEN
  10. ATIVAN [Concomitant]
     Active Substance: LORAZEPAM
  11. LYRICA [Concomitant]
     Active Substance: PREGABALIN
  12. LO-OGESTREL [Concomitant]
  13. TRAZODONE [Concomitant]
     Active Substance: TRAZODONE HYDROCHLORIDE
  14. CALCIUM [Concomitant]
     Active Substance: CALCIUM

REACTIONS (9)
  - Vasculitis [Recovered/Resolved]
  - Swelling [Recovered/Resolved]
  - Wound [Recovering/Resolving]
  - Dermatitis exfoliative [Recovered/Resolved]
  - Urticaria [Recovered/Resolved]
  - Contusion [Recovered/Resolved]
  - Subcutaneous abscess [Recovering/Resolving]
  - Abscess management [Recovered/Resolved with Sequelae]
  - Skin exfoliation [Recovered/Resolved]

NARRATIVE: CASE EVENT DATE: 2008
